FAERS Safety Report 18100618 (Version 3)
Quarter: 2025Q1

REPORT INFORMATION
  Report Type: Spontaneous
  Country: US (occurrence: US)
  Receive Date: 20200801
  Receipt Date: 20250120
  Transmission Date: 20250408
  Serious: No
  Sender: TAKEDA
  Company Number: US-TAKEDA-2020TUS032836

PATIENT
  Sex: Male
  Weight: 56 kg

DRUGS (5)
  1. ENTYVIO [Suspect]
     Active Substance: VEDOLIZUMAB
     Indication: Crohn^s disease
  2. ENTYVIO [Suspect]
     Active Substance: VEDOLIZUMAB
     Indication: Proctitis ulcerative
  3. ENTYVIO [Suspect]
     Active Substance: VEDOLIZUMAB
     Indication: Crohn^s disease
     Dosage: 108 MILLIGRAM, Q2WEEKS
  4. ENTYVIO [Suspect]
     Active Substance: VEDOLIZUMAB
     Indication: Proctitis ulcerative
  5. PANTOPRAZOLE [Concomitant]
     Active Substance: PANTOPRAZOLE
     Indication: Gastritis
     Dosage: 40 MILLIGRAM, BID

REACTIONS (2)
  - Inflammatory marker increased [Not Recovered/Not Resolved]
  - Malaise [Not Recovered/Not Resolved]

NARRATIVE: CASE EVENT DATE: 20200101
